FAERS Safety Report 25934027 (Version 1)
Quarter: 2025Q4

REPORT INFORMATION
  Report Type: Spontaneous
  Country: EU (occurrence: EU)
  Receive Date: 20251017
  Receipt Date: 20251017
  Transmission Date: 20260118
  Serious: Yes (Death, Life-Threatening)
  Sender: BOEHRINGER INGELHEIM
  Company Number: EU-BoehringerIngelheim-2025-BI-101728

PATIENT
  Age: 59 Year
  Sex: Male

DRUGS (1)
  1. OFEV [Suspect]
     Active Substance: NINTEDANIB
     Indication: Idiopathic pulmonary fibrosis
     Dosage: THE TREATMENT STARED IN 2025 AFTER CONFIRMATION OF DIAGNOSIS
     Dates: start: 2025

REACTIONS (4)
  - Inflammatory marker increased [Fatal]
  - Condition aggravated [Fatal]
  - Vomiting [Unknown]
  - Diarrhoea [Unknown]
